FAERS Safety Report 6967539-6 (Version None)
Quarter: 2010Q3

REPORT INFORMATION
  Report Type: 
  Country: None (occurrence: None)
  Receive Date: 20100901
  Receipt Date: 20100812
  Transmission Date: 20110219
  Serious: Yes (Hospitalization, Other)
  Sender: FDA-Public Use
  Company Number: JPI-P-010800

PATIENT
  Age: 63 Year
  Sex: Male

DRUGS (7)
  1. XYREM [Suspect]
     Indication: PRODUCT USED FOR UNKNOWN INDICATION
     Dosage: 4.5 GM (2.25 GM, 2 IN 1 D), ORAL; 6 GM (3 GM, 2 IN 1 D), ORAL; 8 GM (4 GM, 2 IN 1 D), ORAL
     Route: 048
     Dates: start: 20100417, end: 20100430
  2. XYREM [Suspect]
     Indication: PRODUCT USED FOR UNKNOWN INDICATION
     Dosage: 4.5 GM (2.25 GM, 2 IN 1 D), ORAL; 6 GM (3 GM, 2 IN 1 D), ORAL; 8 GM (4 GM, 2 IN 1 D), ORAL
     Route: 048
     Dates: start: 20100501, end: 20100518
  3. XYREM [Suspect]
     Indication: PRODUCT USED FOR UNKNOWN INDICATION
     Dosage: 4.5 GM (2.25 GM, 2 IN 1 D), ORAL; 6 GM (3 GM, 2 IN 1 D), ORAL; 8 GM (4 GM, 2 IN 1 D), ORAL
     Route: 048
     Dates: start: 20100519
  4. CLOMIPRAMINE HYDROCHLORIDE [Concomitant]
  5. ALLOPURINOL [Concomitant]
  6. DILTIAZEM [Concomitant]
  7. CLOPIDOGREL [Concomitant]

REACTIONS (3)
  - CONFUSIONAL STATE [None]
  - HEADACHE [None]
  - HYPERTENSION [None]
